FAERS Safety Report 17675938 (Version 1)
Quarter: 2020Q2

REPORT INFORMATION
  Report Type: Spontaneous
  Country: CA (occurrence: CA)
  Receive Date: 20200416
  Receipt Date: 20200416
  Transmission Date: 20200714
  Serious: Yes (Death, Other)
  Sender: FDA-Public Use
  Company Number: NVSC2020CA102539

PATIENT

DRUGS (2)
  1. FERRIPROX [Suspect]
     Active Substance: DEFERIPRONE
     Indication: IRON OVERLOAD
     Dosage: 100 MG/KG, QD
     Route: 065
  2. EXJADE [Suspect]
     Active Substance: DEFERASIROX
     Indication: IRON OVERLOAD
     Dosage: 15 MG/KG, QD
     Route: 048

REACTIONS (6)
  - Arthralgia [Fatal]
  - Visual impairment [Fatal]
  - Nausea [Fatal]
  - Vomiting [Fatal]
  - Headache [Fatal]
  - Cardiac failure [Fatal]
